FAERS Safety Report 7321231-7 (Version None)
Quarter: 2011Q1

REPORT INFORMATION
  Report Type: 
  Country: None (occurrence: None)
  Receive Date: 20110228
  Receipt Date: 20110222
  Transmission Date: 20110831
  Serious: Yes (Other)
  Sender: FDA-Public Use
  Company Number: US-PFIZER INC-2011038869

PATIENT
  Sex: Female

DRUGS (1)
  1. DIMETAPP [Suspect]
     Dosage: UNK

REACTIONS (3)
  - PYREXIA [None]
  - DELUSION [None]
  - INCORRECT DOSE ADMINISTERED [None]
